FAERS Safety Report 13384878 (Version 1)
Quarter: 2017Q1

REPORT INFORMATION
  Report Type: Spontaneous
  Country: US (occurrence: US)
  Receive Date: 20170329
  Receipt Date: 20170329
  Transmission Date: 20170429
  Serious: Yes (Other)
  Sender: FDA-Public Use
  Company Number: US-ALLERGAN-1709643US

PATIENT
  Age: 71 Year
  Sex: Female
  Weight: 81.63 kg

DRUGS (6)
  1. ATENOLOL. [Concomitant]
     Active Substance: ATENOLOL
     Indication: HYPERTENSION
     Dosage: UNK
  2. CYCLOBENZAPRINE [Concomitant]
     Active Substance: CYCLOBENZAPRINE
     Indication: MUSCLE SPASMS
     Dosage: UNK
  3. BOTOX [Suspect]
     Active Substance: ONABOTULINUMTOXINA
     Indication: MULTIPLE SCLEROSIS
     Dosage: UNK UNK, SINGLE
     Route: 030
     Dates: start: 20161222, end: 20161222
  4. NEURONTIN [Concomitant]
     Active Substance: GABAPENTIN
     Indication: PAIN IN EXTREMITY
     Dosage: UNK
  5. BOTOX [Suspect]
     Active Substance: ONABOTULINUMTOXINA
     Indication: PAIN IN EXTREMITY
  6. LOSARTAN. [Concomitant]
     Active Substance: LOSARTAN
     Indication: HYPERTENSION
     Dosage: UNK

REACTIONS (6)
  - Dysarthria [Not Recovered/Not Resolved]
  - Dysphagia [Not Recovered/Not Resolved]
  - Paralysis [Not Recovered/Not Resolved]
  - Immune system disorder [Not Recovered/Not Resolved]
  - Multiple sclerosis relapse [Recovered/Resolved]
  - Dyspnoea [Recovered/Resolved]
